FAERS Safety Report 4315631-7 (Version None)
Quarter: 2004Q1

REPORT INFORMATION
  Report Type: 
  Country: None (occurrence: None)
  Receive Date: 20040311
  Receipt Date: 20040216
  Transmission Date: 20041129
  Serious: Yes (Other)
  Sender: FDA-Public Use
  Company Number: ES-GLAXOSMITHKLINE-B0323628A

PATIENT
  Age: 68 Year
  Sex: Male
  Weight: 90 kg

DRUGS (4)
  1. SALBUTAMOL [Suspect]
     Indication: CHRONIC OBSTRUCTIVE AIRWAYS DISEASE
     Dosage: .5CC UNKNOWN
     Route: 042
     Dates: start: 20040216, end: 20040216
  2. IPRATROPIUM BROMIDE [Suspect]
     Indication: CHRONIC OBSTRUCTIVE AIRWAYS DISEASE
     Dosage: 2CC UNKNOWN
     Route: 042
     Dates: start: 20040216, end: 20040216
  3. TENORMIN [Concomitant]
     Route: 065
  4. TAVANIC [Concomitant]

REACTIONS (6)
  - BLOOD UREA INCREASED [None]
  - CHEST DISCOMFORT [None]
  - FREQUENT BOWEL MOVEMENTS [None]
  - HYPERVENTILATION [None]
  - MEDICATION ERROR [None]
  - TACHYCARDIA [None]
